FAERS Safety Report 4573049-6 (Version None)
Quarter: 2005Q1

REPORT INFORMATION
  Report Type: 
  Country: None (occurrence: None)
  Receive Date: 20050204
  Receipt Date: 20050120
  Transmission Date: 20050727
  Serious: Yes (Life-Threatening, Other)
  Sender: FDA-Public Use
  Company Number: 8008648

PATIENT
  Age: 45 Year
  Sex: Male

DRUGS (3)
  1. KEPPRA [Suspect]
  2. CARBAMAZEPINE [Suspect]
     Indication: TEMPORAL LOBE EPILEPSY
  3. GABAPENTIN [Suspect]

REACTIONS (2)
  - CARDIAC ARREST [None]
  - SINUS TACHYCARDIA [None]
